FAERS Safety Report 17877029 (Version 4)
Quarter: 2020Q4

REPORT INFORMATION
  Report Type: Spontaneous
  Country: US (occurrence: US)
  Receive Date: 20200609
  Receipt Date: 20201222
  Transmission Date: 20210113
  Serious: No
  Sender: FDA-Public Use
  Company Number: US-GE HEALTHCARE LIFE SCIENCES-2020CSU001546

PATIENT
  Age: 85 Year
  Sex: Female
  Weight: 50 kg

DRUGS (25)
  1. LATANOPROST. [Concomitant]
     Active Substance: LATANOPROST
  2. CEFTRIAXONE. [Concomitant]
     Active Substance: CEFTRIAXONE
  3. CALCIUM VITAMIN D [Concomitant]
     Active Substance: CALCIUM\VITAMIN D
  4. ESCITALOPRAM [Concomitant]
     Active Substance: ESCITALOPRAM OXALATE
  5. BACITRACIN. [Concomitant]
     Active Substance: BACITRACIN
  6. HALOPERIDOL. [Concomitant]
     Active Substance: HALOPERIDOL
  7. MORPHINE [Concomitant]
     Active Substance: MORPHINE
  8. DATSCAN [Suspect]
     Active Substance: IODINE\IOFLUPANE I-123
     Indication: PARKINSON^S DISEASE
  9. LEVOTHYROXINE. [Concomitant]
     Active Substance: LEVOTHYROXINE
  10. COSYNTROPIN. [Concomitant]
     Active Substance: COSYNTROPIN
  11. DATSCAN [Suspect]
     Active Substance: IODINE\IOFLUPANE I-123
     Indication: DIAGNOSTIC PROCEDURE
     Dosage: UNK UNK, SINGLE
     Route: 065
     Dates: start: 20200408, end: 20200408
  12. ALENDRONATE [Concomitant]
     Active Substance: ALENDRONATE SODIUM
  13. CHOLECALCIFEROL [Concomitant]
     Active Substance: CHOLECALCIFEROL
  14. GABAPENTIN. [Concomitant]
     Active Substance: GABAPENTIN
  15. KETOROLAC [Concomitant]
     Active Substance: KETOROLAC TROMETHAMINE
  16. ACETAMINOPHEN;HYDROCODONE [Concomitant]
     Active Substance: ACETAMINOPHEN\HYDROCODONE
  17. AMLODIPINE [Concomitant]
     Active Substance: AMLODIPINE BESYLATE
  18. AMOXICILLIN. [Concomitant]
     Active Substance: AMOXICILLIN
  19. IOPAMIDOL [Concomitant]
     Active Substance: IOPAMIDOL
  20. POTASSIUM CHLORIDE. [Concomitant]
     Active Substance: POTASSIUM CHLORIDE
  21. POLYETHYLENE GLYCOL [Concomitant]
     Active Substance: POLYETHYLENE GLYCOLS
  22. EPINEPHRINE;LIDOCAINE;TETRACAINE [Concomitant]
  23. ACETAMINOPHEN. [Concomitant]
     Active Substance: ACETAMINOPHEN
  24. LORAZEPAM. [Concomitant]
     Active Substance: LORAZEPAM
  25. ONDANSETRON [Concomitant]
     Active Substance: ONDANSETRON

REACTIONS (2)
  - Drug ineffective [Recovered/Resolved]
  - No adverse event [Recovered/Resolved]

NARRATIVE: CASE EVENT DATE: 20200408
